FAERS Safety Report 21688223 (Version 1)
Quarter: 2022Q4

REPORT INFORMATION
  Report Type: Spontaneous
  Country: US (occurrence: None)
  Receive Date: 20221205
  Receipt Date: 20221205
  Transmission Date: 20230112
  Serious: Yes (Hospitalization, Disabling)
  Sender: FDA-Public Use
  Company Number: None

PATIENT
  Age: 38 Year
  Sex: Female
  Weight: 49.5 kg

DRUGS (10)
  1. AIMOVIG [Suspect]
     Active Substance: ERENUMAB-AOOE
     Indication: Migraine prophylaxis
     Dosage: OTHER FREQUENCY : MONTHLY;?
     Route: 030
     Dates: start: 20221120
  2. FLUOXETINE [Concomitant]
     Active Substance: FLUOXETINE HYDROCHLORIDE
  3. WELLBUTRIN [Concomitant]
     Active Substance: BUPROPION HYDROCHLORIDE
  4. LORAZEPAM [Concomitant]
     Active Substance: LORAZEPAM
  5. BACLAFEN [Concomitant]
  6. RIZATRIPTAN [Concomitant]
     Active Substance: RIZATRIPTAN
  7. DAILY VITAMIN PLUS MAGNESIUM [Concomitant]
  8. TYLENOL [Concomitant]
     Active Substance: ACETAMINOPHEN
  9. IBUPROFEN [Concomitant]
     Active Substance: IBUPROFEN
  10. FAMOTIDINE [Concomitant]
     Active Substance: FAMOTIDINE

REACTIONS (9)
  - Nausea [None]
  - Headache [None]
  - Musculoskeletal stiffness [None]
  - Vomiting [None]
  - Constipation [None]
  - Anxiety [None]
  - Tachycardia [None]
  - Panic attack [None]
  - Malaise [None]

NARRATIVE: CASE EVENT DATE: 20221121
